FAERS Safety Report 21724238 (Version 2)
Quarter: 2023Q1

REPORT INFORMATION
  Report Type: Spontaneous
  Country: US (occurrence: US)
  Receive Date: 20221213
  Receipt Date: 20230316
  Transmission Date: 20230418
  Serious: Yes (Other)
  Sender: FDA-Public Use
  Company Number: US-ALLERGAN-2233792US

PATIENT
  Age: 62 Year
  Sex: Female

DRUGS (1)
  1. DURYSTA [Suspect]
     Active Substance: BIMATOPROST
     Indication: Ocular hypertension
     Dosage: 0.01 MG, SINGLE
     Route: 047
     Dates: start: 20220324, end: 2022

REACTIONS (5)
  - Corneal endothelial cell loss [Unknown]
  - Keratitis [Recovering/Resolving]
  - Corneal oedema [Recovered/Resolved]
  - Vision blurred [Unknown]
  - Eye pain [Unknown]

NARRATIVE: CASE EVENT DATE: 20220101
